FAERS Safety Report 9859398 (Version 1)
Quarter: 2014Q1

REPORT INFORMATION
  Report Type: Spontaneous
  Country: DE (occurrence: None)
  Receive Date: 20140128
  Receipt Date: 20140128
  Transmission Date: 20141002
  Serious: Yes (Hospitalization)
  Sender: FDA-Public Use
  Company Number: 7264287

PATIENT
  Age: 69 Year
  Sex: Female

DRUGS (4)
  1. BISOPROLOL FUMARATE [Suspect]
     Indication: HYPERTENSION
     Dosage: ORAL
     Route: 048
  2. L-THYROXINE [Suspect]
     Indication: HYPOTHYROIDISM
     Route: 048
  3. ARMOMASIN (EXEMESTANE) (EXEMESTANE) [Suspect]
     Indication: BREAST CANCER FEMALE
     Route: 048
     Dates: start: 20101216
  4. NEPRESOL SULFATE [Suspect]
     Indication: HYPERTENSION
     Route: 048

REACTIONS (2)
  - Urinary tract infection [None]
  - Hydronephrosis [None]
